FAERS Safety Report 21950721 (Version 4)
Quarter: 2023Q2

REPORT INFORMATION
  Report Type: Spontaneous
  Country: JP (occurrence: JP)
  Receive Date: 20230203
  Receipt Date: 20230523
  Transmission Date: 20230722
  Serious: No
  Sender: FDA-Public Use
  Company Number: JP-PFIZER INC-PV202300017475

PATIENT
  Age: 2 Year

DRUGS (1)
  1. GENOTROPIN [Suspect]
     Active Substance: SOMATROPIN
     Dosage: 0.2 MG, DAILY
     Route: 058

REACTIONS (3)
  - Device leakage [Unknown]
  - Drug dose omission by device [Unknown]
  - Device use error [Unknown]
